FAERS Safety Report 5946909-9 (Version None)
Quarter: 2008Q4

REPORT INFORMATION
  Report Type: 
  Country: None (occurrence: None)
  Receive Date: 20081110
  Receipt Date: 20081105
  Transmission Date: 20090506
  Serious: Yes (Other)
  Sender: FDA-Public Use
  Company Number: JP-BRACCO-000926

PATIENT
  Age: 64 Year
  Sex: Male

DRUGS (13)
  1. IOPAMIDOL [Suspect]
     Indication: COMPUTERISED TOMOGRAM ABDOMEN
     Route: 042
     Dates: start: 20080724, end: 20080724
  2. IOPAMIDOL [Suspect]
     Indication: METASTASES TO LIVER
     Route: 042
     Dates: start: 20080724, end: 20080724
  3. IOPAMIDOL [Suspect]
     Indication: LARGE INTESTINE CARCINOMA
     Route: 042
     Dates: start: 20080724, end: 20080724
  4. CEREKINON [Concomitant]
     Indication: PROPHYLAXIS
     Route: 048
     Dates: start: 20060101
  5. CEROCRAL [Concomitant]
     Indication: PROPHYLAXIS
     Route: 048
     Dates: start: 20060101
  6. AMLODIN [Concomitant]
     Indication: PROPHYLAXIS
     Route: 048
     Dates: start: 20060101
  7. CORTICOSTEROIDS [Concomitant]
     Route: 061
     Dates: start: 20080731
  8. ASPIRIN [Concomitant]
     Indication: PROPHYLAXIS
     Route: 048
     Dates: start: 20060101
  9. PLETAL [Concomitant]
     Indication: PROPHYLAXIS
     Route: 048
     Dates: start: 20060101
  10. LASIX [Concomitant]
     Indication: PROPHYLAXIS
     Route: 048
     Dates: start: 20060101
  11. NITOROL [Concomitant]
     Indication: PROPHYLAXIS
     Route: 048
     Dates: start: 20060101
  12. SIGMART [Concomitant]
     Indication: PROPHYLAXIS
     Route: 048
     Dates: start: 20060101
  13. ALLELOCK [Concomitant]
     Indication: PROPHYLAXIS
     Route: 048
     Dates: start: 20060101

REACTIONS (3)
  - GENITAL EROSION [None]
  - LIP EROSION [None]
  - ORAL MUCOSA EROSION [None]
